FAERS Safety Report 16308270 (Version 2)
Quarter: 2019Q2

REPORT INFORMATION
  Report Type: Report from Study
  Country: EG (occurrence: EG)
  Receive Date: 20190514
  Receipt Date: 20190515
  Transmission Date: 20190711
  Serious: Yes (Death, Other)
  Sender: FDA-Public Use
  Company Number: EG-HIKMA PHARMACEUTICALS USA INC.-EG-H14001-19-01036

PATIENT
  Age: 39 Year
  Sex: Male
  Weight: 81 kg

DRUGS (1)
  1. CARCEMIA [Suspect]
     Active Substance: IMATINIB MESYLATE
     Indication: CHRONIC MYELOID LEUKAEMIA
     Route: 048
     Dates: start: 20180923, end: 20190101

REACTIONS (4)
  - Disease progression [Fatal]
  - Tumour lysis syndrome [Fatal]
  - Anaemia [Fatal]
  - Sepsis [Fatal]

NARRATIVE: CASE EVENT DATE: 20190101
